FAERS Safety Report 21227187 (Version 1)
Quarter: 2022Q3

REPORT INFORMATION
  Report Type: Spontaneous
  Country: GB (occurrence: GB)
  Receive Date: 20220818
  Receipt Date: 20220818
  Transmission Date: 20221027
  Serious: Yes (Hospitalization, Disabling, Other)
  Sender: FDA-Public Use
  Company Number: GB-MHRA-MED-202208072223070260-CKFJQ

PATIENT
  Age: 90 Year
  Sex: Female

DRUGS (13)
  1. KEPPRA [Suspect]
     Active Substance: LEVETIRACETAM
     Indication: Epilepsy
     Dosage: 2 X 250MG DAILY
     Dates: start: 202204
  2. KEPPRA [Suspect]
     Active Substance: LEVETIRACETAM
     Dosage: 2 X 500MG DAILY  (INCREASE TITRATED OVER 1 WEEK PERIOD)
     Dates: start: 20220614
  3. KEPPRA [Suspect]
     Active Substance: LEVETIRACETAM
     Dosage: 2 X 250MG DAILY
  4. KEPPRA [Suspect]
     Active Substance: LEVETIRACETAM
     Dosage: 2 X 500MG DAILY
     Dates: start: 20220614
  5. KEPPRA [Suspect]
     Active Substance: LEVETIRACETAM
     Dosage: 2 X 250MG DAILY
  6. KEPPRA [Suspect]
     Active Substance: LEVETIRACETAM
     Dosage: 1 X 250MG AND 1 X 500MG DAILY; ;
     Dates: start: 20220427
  7. CALCIUM CARBONATE\CHOLECALCIFEROL [Concomitant]
     Active Substance: CALCIUM CARBONATE\CHOLECALCIFEROL
     Indication: Product used for unknown indication
  8. ALENDRONIC ACID [Concomitant]
     Active Substance: ALENDRONIC ACID
     Indication: Product used for unknown indication
  9. AMLODIPINE [Concomitant]
     Active Substance: AMLODIPINE BESYLATE
     Indication: Product used for unknown indication
  10. UMECLIDINIUM BROMIDE\VILANTEROL TRIFENATATE [Concomitant]
     Active Substance: UMECLIDINIUM BROMIDE\VILANTEROL TRIFENATATE
     Indication: Product used for unknown indication
  11. COCODAMOL [Concomitant]
     Active Substance: ACETAMINOPHEN\CODEINE PHOSPHATE
     Indication: Product used for unknown indication
  12. EDOXABAN [Concomitant]
     Active Substance: EDOXABAN
     Indication: Product used for unknown indication
  13. ALBUTEROL [Concomitant]
     Active Substance: ALBUTEROL
     Indication: Product used for unknown indication

REACTIONS (15)
  - Depression suicidal [Not Recovered/Not Resolved]
  - Anxiety [Recovering/Resolving]
  - Depression [Not Recovered/Not Resolved]
  - Oxygen saturation decreased [Recovered/Resolved]
  - Hallucination [Unknown]
  - Urinary tract infection [Unknown]
  - Gait disturbance [Unknown]
  - Confusional state [Not Recovered/Not Resolved]
  - Anger [Not Recovered/Not Resolved]
  - COVID-19 [Unknown]
  - Asthenia [Unknown]
  - Delusion [Not Recovered/Not Resolved]
  - Paranoia [Not Recovered/Not Resolved]
  - Memory impairment [Unknown]
  - Medication error [Unknown]

NARRATIVE: CASE EVENT DATE: 20220101
